FAERS Safety Report 14794207 (Version 2)
Quarter: 2018Q2

REPORT INFORMATION
  Report Type: Report from Study
  Country: US (occurrence: US)
  Receive Date: 20180423
  Receipt Date: 20180521
  Transmission Date: 20180711
  Serious: Yes (Death)
  Sender: FDA-Public Use
  Company Number: PHEH2018US015430

PATIENT
  Age: 61 Year
  Sex: Female
  Weight: 49.3 kg

DRUGS (1)
  1. ZARXIO [Suspect]
     Active Substance: FILGRASTIM-SNDZ
     Indication: NEUTROPENIA
     Dosage: 480 UG, UNK
     Route: 058
     Dates: start: 20180104, end: 20180120

REACTIONS (2)
  - Malignant ovarian cyst [Fatal]
  - Malnutrition [Unknown]

NARRATIVE: CASE EVENT DATE: 20180401
